FAERS Safety Report 5088936-2 (Version None)
Quarter: 2006Q3

REPORT INFORMATION
  Report Type: 
  Country: None (occurrence: None)
  Receive Date: 20060825
  Receipt Date: 20060816
  Transmission Date: 20061208
  Serious: Yes (Hospitalization)
  Sender: FDA-Public Use
  Company Number: US-JNJFOC-20060804008

PATIENT
  Sex: Male
  Weight: 81.65 kg

DRUGS (7)
  1. DURAGESIC-100 [Suspect]
     Indication: BACK PAIN
     Route: 062
  2. PAXIL [Concomitant]
     Indication: DEPRESSION
     Route: 048
  3. TRICOR [Concomitant]
     Indication: BLOOD CHOLESTEROL
     Route: 048
  4. METOPROLOL TARTRATE [Concomitant]
     Indication: HYPERTENSION
     Route: 048
  5. VYTORIN [Concomitant]
     Indication: BLOOD CHOLESTEROL
     Route: 048
  6. METFORMIN [Concomitant]
     Indication: DIABETES MELLITUS
     Route: 048
  7. FUROSEMIDE [Concomitant]
     Route: 048

REACTIONS (2)
  - BLADDER CANCER [None]
  - PROSTATE EXAMINATION ABNORMAL [None]
